FAERS Safety Report 22280966 (Version 1)
Quarter: 2023Q2

REPORT INFORMATION
  Report Type: Spontaneous
  Country: DZ (occurrence: DZ)
  Receive Date: 20230503
  Receipt Date: 20230503
  Transmission Date: 20230721
  Serious: Yes (Other)
  Sender: FDA-Public Use
  Company Number: None

PATIENT
  Age: 55 Year
  Sex: Male

DRUGS (1)
  1. PREDNISOLONE [Suspect]
     Active Substance: PREDNISOLONE
     Indication: Optic neuritis
     Dosage: PREDNISOLONE 60MG/DAY TAPERED GRADUALLY OVER THREE MONTHS
     Route: 065

REACTIONS (2)
  - Glaucomatous optic neuropathy [Unknown]
  - Condition aggravated [Unknown]
